FAERS Safety Report 13456104 (Version 2)
Quarter: 2017Q2

REPORT INFORMATION
  Report Type: Report from Study
  Country: LB (occurrence: LB)
  Receive Date: 20170418
  Receipt Date: 20170428
  Transmission Date: 20170830
  Serious: Yes (Hospitalization)
  Sender: FDA-Public Use
  Company Number: PHHY2017LB056382

PATIENT
  Sex: Male

DRUGS (1)
  1. ENTRESTO [Suspect]
     Active Substance: SACUBITRIL\VALSARTAN
     Indication: PRODUCT USED FOR UNKNOWN INDICATION
     Dosage: 200 MG, BID
     Route: 048
     Dates: start: 20160809

REACTIONS (6)
  - Pulmonary oedema [Recovering/Resolving]
  - Dyspnoea [Unknown]
  - Ejection fraction decreased [Unknown]
  - Pyrexia [Unknown]
  - Oedema [Unknown]
  - Bronchitis [Recovering/Resolving]
